FAERS Safety Report 15855827 (Version 1)
Quarter: 2019Q1

REPORT INFORMATION
  Report Type: Spontaneous
  Country: None (occurrence: US)
  Receive Date: 20190122
  Receipt Date: 20190122
  Transmission Date: 20190417
  Serious: Yes (Congenital Anomaly)
  Sender: FDA-Public Use
  Company Number: US-POPULATION COUNCIL, INC.-2061590

PATIENT
  Sex: Female

DRUGS (1)
  1. NORPLANT [Suspect]
     Active Substance: LEVONORGESTREL
     Indication: CONTRACEPTION
     Dates: start: 19931102, end: 19971104

REACTIONS (4)
  - Congenital musculoskeletal anomaly [None]
  - Cleft palate [None]
  - Cytogenetic abnormality [None]
  - Syndactyly [None]

NARRATIVE: CASE EVENT DATE: 19980603
